FAERS Safety Report 8585979-9 (Version None)
Quarter: 2012Q3

REPORT INFORMATION
  Report Type: 
  Country: None (occurrence: None)
  Receive Date: 20120810
  Receipt Date: 20120805
  Transmission Date: 20120928
  Serious: Yes (Hospitalization)
  Sender: FDA-Public Use
  Company Number: US-ACTELION-A-NJ2012-64966

PATIENT
  Age: 70 Year
  Sex: Female

DRUGS (4)
  1. TRACLEER [Suspect]
     Indication: PULMONARY ARTERIAL HYPERTENSION
     Dosage: 125 MG, BID
     Route: 048
     Dates: start: 20111001
  2. CIALIS [Concomitant]
  3. ADCIRCA [Concomitant]
  4. TRACLEER [Suspect]
     Dosage: 62.5 MG, BID
     Route: 048
     Dates: start: 20110801, end: 20111001

REACTIONS (8)
  - TRANSFUSION [None]
  - FATIGUE [None]
  - GASTROINTESTINAL HAEMORRHAGE [None]
  - DYSPNOEA [None]
  - GASTRIC ANTRAL VASCULAR ECTASIA [None]
  - BLOOD POTASSIUM INCREASED [None]
  - ANAEMIA [None]
  - VASCULAR CAUTERISATION [None]
